FAERS Safety Report 14529888 (Version 2)
Quarter: 2018Q3

REPORT INFORMATION
  Report Type: Spontaneous
  Country: US (occurrence: US)
  Receive Date: 20180214
  Receipt Date: 20180920
  Transmission Date: 20181010
  Serious: No
  Sender: FDA-Public Use
  Company Number: US-IGSA-GTI005365

PATIENT
  Age: 59 Year
  Sex: Male
  Weight: 61 kg

DRUGS (19)
  1. PROLASTIN?C [Suspect]
     Active Substance: .ALPHA.1-PROTEINASE INHIBITOR HUMAN
     Dosage: UNK UNKNOWN, Q.WK.
     Route: 042
     Dates: start: 20170330, end: 20170330
  2. PROLASTIN?C [Suspect]
     Active Substance: .ALPHA.1-PROTEINASE INHIBITOR HUMAN
     Indication: ALPHA-1 ANTI-TRYPSIN DEFICIENCY
     Dosage: 3660 MG, Q.WK.
     Route: 042
     Dates: start: 20170411, end: 20170411
  3. ACETAMINOPHEN. [Concomitant]
     Active Substance: ACETAMINOPHEN
     Dosage: UNK UNKNOWN, UNK
  4. AZELASTINE. [Concomitant]
     Active Substance: AZELASTINE HYDROCHLORIDE
     Dosage: UNK UNKNOWN, UNK
  5. ANORO ELLIPTA [Concomitant]
     Active Substance: UMECLIDINIUM BROMIDE\VILANTEROL TRIFENATATE
     Dosage: UNK UNKNOWN, UNK
  6. ALBUTEROL                          /00139501/ [Concomitant]
     Active Substance: ALBUTEROL
     Dosage: UNK UNKNOWN, UNK
  7. BUDESONIDE. [Concomitant]
     Active Substance: BUDESONIDE
     Dosage: UNK UNKNOWN, UNK
  8. FLONASE [Concomitant]
     Active Substance: FLUTICASONE PROPIONATE
     Dosage: UNK UNKNOWN, UNK
  9. CLOBETASOL [Concomitant]
     Active Substance: CLOBETASOL
     Dosage: UNK UNKNOWN, UNK
  10. PROLASTIN?C [Suspect]
     Active Substance: .ALPHA.1-PROTEINASE INHIBITOR HUMAN
     Dosage: UNK UNKNOWN, Q.WK.
     Dates: start: 20170502, end: 20170502
  11. METOPROLOL. [Concomitant]
     Active Substance: METOPROLOL
     Dosage: UNK UNKNOWN, UNK
  12. LORATADINE. [Concomitant]
     Active Substance: LORATADINE
     Dosage: UNK UNKNOWN, UNK
  13. CLOBETASOL [Concomitant]
     Active Substance: CLOBETASOL
     Dosage: UNK UNKNOWN, UNK
  14. VENTOLIN [Concomitant]
     Active Substance: ALBUTEROL SULFATE
     Dosage: UNK UNKNOWN, UNK
  15. GABAPENTIN. [Concomitant]
     Active Substance: GABAPENTIN
     Dosage: UNK UNKNOWN, UNK
  16. ATROVENT [Concomitant]
     Active Substance: IPRATROPIUM BROMIDE
     Dosage: UNK UNKNOWN, UNK
  17. ELIQUIS [Concomitant]
     Active Substance: APIXABAN
     Dosage: UNK UNKNOWN, UNK
  18. MONTELUKAST [Concomitant]
     Active Substance: MONTELUKAST SODIUM
     Dosage: UNK UNKNOWN, UNK
  19. MUCUS RELIEF DM [Concomitant]
     Active Substance: DEXTROMETHORPHAN HYDROBROMIDE\GUAIFENESIN
     Dosage: UNK UNK, PRN

REACTIONS (1)
  - Joint swelling [Recovered/Resolved]

NARRATIVE: CASE EVENT DATE: 20170411
